FAERS Safety Report 8200164-8 (Version None)
Quarter: 2012Q1

REPORT INFORMATION
  Report Type: 
  Country: None (occurrence: None)
  Receive Date: 20120306
  Receipt Date: 20120220
  Transmission Date: 20120608
  Serious: Yes (Other)
  Sender: FDA-Public Use
  Company Number: CN-2012-1112

PATIENT
  Sex: Female

DRUGS (2)
  1. GEMCITABINE [Suspect]
     Indication: BREAST CANCER METASTATIC
     Dosage: 1000 MG/M2, IV
     Route: 042
  2. NAVELBINE [Suspect]
     Indication: BREAST CANCER METASTATIC
     Dosage: 25 MG/M2, IV
     Route: 042

REACTIONS (1)
  - GASTROINTESTINAL HAEMORRHAGE [None]
